FAERS Safety Report 9319689 (Version 1)
Quarter: 2013Q1

REPORT INFORMATION
  Report Type: Spontaneous
  Country: IT (occurrence: None)
  Receive Date: 20121210
  Receipt Date: 20121210
  Transmission Date: 20140127
  Serious: Yes (Other)
  Sender: FDA-Public Use
  Company Number: IT-2012-3833

PATIENT
  Age: 77 Year
  Sex: Male

DRUGS (1)
  1. NAVELBINE (VINORELBINE TARTRATE) INFUSION [Suspect]
     Indication: NON-SMALL CELL LUNG CANCER
     Dosage: PER CHEMO REGIMEN
     Route: 042
     Dates: start: 20120628, end: 20121009

REACTIONS (1)
  - Injection site phlebitis [None]
